FAERS Safety Report 8482066-5 (Version None)
Quarter: 2012Q3

REPORT INFORMATION
  Report Type: 
  Country: None (occurrence: None)
  Receive Date: 20120702
  Receipt Date: 20120628
  Transmission Date: 20120928
  Serious: Yes (Hospitalization)
  Sender: FDA-Public Use
  Company Number: PHHO2012US009320

PATIENT
  Sex: Male
  Weight: 111.43 kg

DRUGS (10)
  1. LISINOPRIL [Suspect]
     Indication: HYPERTENSION
  2. FORMOTEROL FUMARATE [Concomitant]
     Indication: CHRONIC OBSTRUCTIVE PULMONARY DISEASE
     Dosage: 2 DF, BID
     Dates: start: 20060101
  3. ALISKIREN [Suspect]
     Indication: CARDIAC FAILURE ACUTE
     Dosage: 300 MG, QD
     Route: 048
     Dates: start: 20110928, end: 20120605
  4. CARVEDILOL [Concomitant]
     Indication: CARDIAC FAILURE
     Dosage: 12.5 MG, G/2
     Route: 048
     Dates: start: 20111103
  5. ALBUTEROL [Concomitant]
     Indication: CHRONIC OBSTRUCTIVE PULMONARY DISEASE
     Dosage: 1 DF, TID
     Dates: start: 20030101
  6. BUDESONIDE [Concomitant]
     Indication: CHRONIC OBSTRUCTIVE PULMONARY DISEASE
     Dosage: 2 DF, BID
     Dates: start: 20060101
  7. LISINOPRIL [Suspect]
     Indication: CARDIAC FAILURE
     Dosage: 20 MG, QD
     Route: 048
  8. METOLAZONE [Suspect]
     Indication: OEDEMA PERIPHERAL
     Dosage: UNK
     Route: 048
     Dates: end: 20120620
  9. FUROSEMIDE [Concomitant]
     Indication: CARDIAC FAILURE
     Dosage: 80 MG, QD
     Route: 048
     Dates: start: 20120330, end: 20120620
  10. CARVEDILOL [Concomitant]
     Indication: HYPERTENSION

REACTIONS (1)
  - HYPONATRAEMIA [None]
